FAERS Safety Report 14631079 (Version 1)
Quarter: 2018Q1

REPORT INFORMATION
  Report Type: Spontaneous
  Country: US (occurrence: US)
  Receive Date: 20180313
  Receipt Date: 20180313
  Transmission Date: 20180509
  Serious: Yes (Other)
  Sender: FDA-Public Use
  Company Number: US-TEVA-736726USA

PATIENT
  Age: 60 Year
  Sex: Female
  Weight: 82 kg

DRUGS (1)
  1. AMOXICILLIN. [Suspect]
     Active Substance: AMOXICILLIN
     Indication: SINUSITIS
     Route: 065
     Dates: start: 20170125

REACTIONS (5)
  - Pain in extremity [Unknown]
  - Abdominal distension [Unknown]
  - Confusional state [Unknown]
  - Speech disorder [Unknown]
  - Nervous system disorder [Unknown]

NARRATIVE: CASE EVENT DATE: 20170125
